FAERS Safety Report 23339751 (Version 2)
Quarter: 2024Q1

REPORT INFORMATION
  Report Type: Spontaneous
  Country: CH (occurrence: CH)
  Receive Date: 20231226
  Receipt Date: 20240124
  Transmission Date: 20240410
  Serious: Yes (Hospitalization, Other)
  Sender: FDA-Public Use
  Company Number: CH-DSJP-DSE-2023-152822

PATIENT
  Age: 77 Year
  Sex: Female
  Weight: 72 kg

DRUGS (2)
  1. ENHERTU [Suspect]
     Active Substance: FAM-TRASTUZUMAB DERUXTECAN-NXKI
     Indication: Breast cancer recurrent
     Dosage: 5.4 MG/KG (380 MG), CYCLIC
     Route: 065
     Dates: start: 20231211
  2. ENHERTU [Suspect]
     Active Substance: FAM-TRASTUZUMAB DERUXTECAN-NXKI
     Indication: Breast cancer metastatic
     Dosage: UNK
     Route: 065
     Dates: start: 20240102

REACTIONS (5)
  - Colitis [Recovered/Resolved]
  - Diverticular perforation [Unknown]
  - Diverticulum [Recovered/Resolved]
  - Lymphoedema [Unknown]
  - Tissue infiltration [Unknown]

NARRATIVE: CASE EVENT DATE: 20231222
